FAERS Safety Report 4909040-7 (Version None)
Quarter: 2006Q1

REPORT INFORMATION
  Report Type: 
  Country: None (occurrence: None)
  Receive Date: 20060208
  Receipt Date: 20060127
  Transmission Date: 20060701
  Serious: Yes (Other)
  Sender: FDA-Public Use
  Company Number: 143984USA

PATIENT
  Age: 26 Year
  Sex: Female

DRUGS (3)
  1. MERCAPTOPURINE [Suspect]
     Indication: COLITIS ULCERATIVE
     Dates: start: 20030101, end: 20050501
  2. ASACOL [Concomitant]
  3. PREDNISONE [Concomitant]

REACTIONS (1)
  - MYELODYSPLASTIC SYNDROME [None]
